FAERS Safety Report 24010786 (Version 1)
Quarter: 2024Q2

REPORT INFORMATION
  Report Type: Spontaneous
  Country: US (occurrence: None)
  Receive Date: 20240624
  Receipt Date: 20240624
  Transmission Date: 20240716
  Serious: Yes (Other)
  Sender: FDA-Public Use
  Company Number: None

PATIENT
  Sex: Female
  Weight: 81.45 kg

DRUGS (2)
  1. EVENITY [Suspect]
     Active Substance: ROMOSOZUMAB-AQQG
     Indication: Prophylaxis
     Dates: start: 20220303, end: 20230320
  2. PROLIA [Suspect]
     Active Substance: DENOSUMAB

REACTIONS (2)
  - Osteonecrosis of jaw [None]
  - Tooth loss [None]
